FAERS Safety Report 7287239-5 (Version None)
Quarter: 2011Q1

REPORT INFORMATION
  Report Type: 
  Country: None (occurrence: None)
  Receive Date: 20110211
  Receipt Date: 20110204
  Transmission Date: 20110831
  Serious: Yes (Other)
  Sender: FDA-Public Use
  Company Number: US-BAYER-2011-013037

PATIENT
  Sex: Female

DRUGS (2)
  1. YAZ [Suspect]
     Dosage: UNK
     Dates: start: 20080701, end: 20100101
  2. YASMIN [Suspect]
     Dosage: UNK
     Dates: start: 20080701, end: 20100101

REACTIONS (13)
  - GALLBLADDER DISORDER [None]
  - MYOCARDIAL INFARCTION [None]
  - ANXIETY [None]
  - CHOLECYSTECTOMY [None]
  - CEREBROVASCULAR ACCIDENT [None]
  - EMBOLISM ARTERIAL [None]
  - THROMBOSIS [None]
  - PAIN [None]
  - EMOTIONAL DISTRESS [None]
  - NEPHROPATHY [None]
  - ARRHYTHMIA [None]
  - INJURY [None]
  - TRANSIENT ISCHAEMIC ATTACK [None]
